FAERS Safety Report 19787426 (Version 7)
Quarter: 2021Q4

REPORT INFORMATION
  Report Type: Report from Study
  Country: CA (occurrence: CA)
  Receive Date: 20210903
  Receipt Date: 20211119
  Transmission Date: 20220303
  Serious: Yes (Death, Hospitalization, Other)
  Sender: FDA-Public Use
  Company Number: CA-BIOGEN-2021BI01042783

PATIENT
  Age: 75 Year
  Sex: Female
  Weight: 60.7 kg

DRUGS (21)
  1. ADUCANUMAB [Suspect]
     Active Substance: ADUCANUMAB
     Indication: Dementia Alzheimer^s type
     Route: 042
     Dates: start: 20201102, end: 20201102
  2. ADUCANUMAB [Suspect]
     Active Substance: ADUCANUMAB
     Route: 042
     Dates: start: 20201130, end: 20201130
  3. ADUCANUMAB [Suspect]
     Active Substance: ADUCANUMAB
     Dosage: DOSING ERROR
     Route: 042
     Dates: start: 20201229, end: 20201229
  4. ADUCANUMAB [Suspect]
     Active Substance: ADUCANUMAB
     Route: 042
     Dates: start: 20210125, end: 20210125
  5. ADUCANUMAB [Suspect]
     Active Substance: ADUCANUMAB
     Route: 042
     Dates: start: 20210325, end: 20210325
  6. ADUCANUMAB [Suspect]
     Active Substance: ADUCANUMAB
     Route: 042
     Dates: start: 20210421, end: 20210421
  7. ADUCANUMAB [Suspect]
     Active Substance: ADUCANUMAB
     Route: 042
     Dates: start: 20210518, end: 20210518
  8. ADUCANUMAB [Suspect]
     Active Substance: ADUCANUMAB
     Route: 042
     Dates: start: 20210616, end: 20210616
  9. ADUCANUMAB [Suspect]
     Active Substance: ADUCANUMAB
     Route: 042
     Dates: start: 20210713, end: 20210713
  10. ADUCANUMAB [Suspect]
     Active Substance: ADUCANUMAB
     Route: 042
     Dates: start: 20210810, end: 20210810
  11. ROSUVASTATIN [Concomitant]
     Active Substance: ROSUVASTATIN
     Indication: Hypercholesterolaemia
     Route: 048
     Dates: start: 20161108
  12. RAMIPRIL [Concomitant]
     Active Substance: RAMIPRIL
     Indication: Hypertension
     Route: 048
     Dates: start: 20140203
  13. TRAZODONE [Concomitant]
     Active Substance: TRAZODONE HYDROCHLORIDE
     Indication: Insomnia
     Route: 048
     Dates: start: 2006
  14. CALCIUM\CHOLECALCIFEROL [Concomitant]
     Active Substance: CALCIUM\CHOLECALCIFEROL
     Indication: Supplementation therapy
     Dosage: 1 TAB
     Route: 048
     Dates: start: 1984
  15. magnesium and melatonin [Concomitant]
     Indication: Insomnia
     Dosage: 1 TAB
     Route: 048
     Dates: start: 2019
  16. PSYLLIUM [Concomitant]
     Active Substance: PLANTAGO SEED
     Indication: Constipation
     Dosage: 3 CAPS
     Route: 048
     Dates: start: 2001
  17. ACETAMINOPHEN [Concomitant]
     Active Substance: ACETAMINOPHEN
     Indication: Rotator cuff syndrome
     Route: 048
     Dates: start: 2019
  18. LORAZEPAM [Concomitant]
     Active Substance: LORAZEPAM
     Indication: Procedural anxiety
     Route: 048
     Dates: start: 20201013
  19. LORAZEPAM [Concomitant]
     Active Substance: LORAZEPAM
     Route: 048
     Dates: start: 20210818, end: 20210818
  20. VITAMIN B12 [Concomitant]
     Active Substance: CYANOCOBALAMIN
     Indication: Vitamin B12 deficiency
     Route: 048
     Dates: start: 20210326
  21. magnesium and electrolytes [Concomitant]
     Indication: Supplementation therapy
     Dosage: 1 TAB
     Route: 048
     Dates: start: 2015

REACTIONS (1)
  - Amyloid related imaging abnormality-oedema/effusion [Fatal]

NARRATIVE: CASE EVENT DATE: 20210818
